FAERS Safety Report 6094109-7 (Version None)
Quarter: 2009Q1

REPORT INFORMATION
  Report Type: 
  Country: None (occurrence: None)
  Receive Date: 20090224
  Receipt Date: 20090224
  Transmission Date: 20090719
  Serious: Yes (Hospitalization)
  Sender: FDA-Public Use
  Company Number: None

PATIENT
  Age: 70 Year
  Sex: Male
  Weight: 62.4 kg

DRUGS (1)
  1. CLONIDINE [Suspect]
     Indication: HYPERTENSION
     Dosage: 0.2 MG BID PO
     Route: 048
     Dates: start: 20011105, end: 20090218

REACTIONS (4)
  - HYPOTENSION [None]
  - LETHARGY [None]
  - SEDATION [None]
  - SOMNOLENCE [None]
